FAERS Safety Report 9283784 (Version 1)
Quarter: 2013Q2

REPORT INFORMATION
  Report Type: Spontaneous
  Country: BR (occurrence: BR)
  Receive Date: 20130510
  Receipt Date: 20130510
  Transmission Date: 20140414
  Serious: Yes (Other)
  Sender: FDA-Public Use
  Company Number: BR-JNJFOC-20130502158

PATIENT
  Age: 43 Year
  Sex: Male
  Weight: 113 kg

DRUGS (7)
  1. REMICADE [Suspect]
     Indication: PSORIATIC ARTHROPATHY
     Dosage: 1ST INFUSION
     Route: 042
     Dates: start: 20130404
  2. GLIMEPIRIDE [Concomitant]
     Indication: DIABETES MELLITUS
     Route: 065
  3. PROPRANOLOL [Concomitant]
     Indication: HYPERTENSION
     Route: 065
  4. BENICAR [Concomitant]
     Indication: HYPERTENSION
     Route: 065
  5. NOVANLO [Concomitant]
     Indication: HYPERTENSION
     Route: 065
  6. PREDNISONE [Concomitant]
     Indication: PSORIATIC ARTHROPATHY
     Route: 065
  7. NORIPURUM [Concomitant]
     Indication: MINERAL SUPPLEMENTATION
     Route: 065

REACTIONS (12)
  - Decreased immune responsiveness [Unknown]
  - Haemoglobin decreased [Unknown]
  - Tinnitus [Not Recovered/Not Resolved]
  - Malaise [Unknown]
  - Headache [Recovered/Resolved]
  - Abdominal pain [Unknown]
  - Decreased appetite [Recovered/Resolved]
  - Nausea [Not Recovered/Not Resolved]
  - Pruritus generalised [Recovering/Resolving]
  - Chills [Not Recovered/Not Resolved]
  - Asthenia [Not Recovered/Not Resolved]
  - Vitamin B12 deficiency [Unknown]
